FAERS Safety Report 15787311 (Version 1)
Quarter: 2019Q1

REPORT INFORMATION
  Report Type: Spontaneous
  Country: DE (occurrence: DE)
  Receive Date: 20190103
  Receipt Date: 20190103
  Transmission Date: 20190417
  Serious: Yes (Other)
  Sender: FDA-Public Use
  Company Number: DE-NAPPMUNDI-GBR-2018-0062861

PATIENT
  Sex: Male

DRUGS (3)
  1. OXYGESIC [Suspect]
     Active Substance: OXYCODONE
     Indication: PAIN
     Dosage: 5 MG, Q8H
     Route: 065
  2. OXYGESIC [Suspect]
     Active Substance: OXYCODONE
     Dosage: 1 TABLET, BID  (STRENGTH 5MG)
     Route: 065
  3. OXYGESIC [Suspect]
     Active Substance: OXYCODONE
     Dosage: 1 TABLET, DAILY ONE IN THE MORNING AND ONE IN THE EVENING (STRENGTH 40MG)
     Route: 065

REACTIONS (5)
  - Drug effect delayed [Unknown]
  - Drug withdrawal syndrome [Unknown]
  - Nervousness [Unknown]
  - Blood pressure increased [Unknown]
  - Product dose omission [Unknown]
